FAERS Safety Report 10023874 (Version 1)
Quarter: 2014Q1

REPORT INFORMATION
  Report Type: Report from Study
  Country: NL (occurrence: NL)
  Receive Date: 20140320
  Receipt Date: 20140320
  Transmission Date: 20141002
  Serious: Yes (Other)
  Sender: FDA-Public Use
  Company Number: PHHY2014NL029096

PATIENT
  Age: 47 Year
  Sex: Female

DRUGS (3)
  1. SANDOSTATINE LAR [Suspect]
     Indication: POST GASTRIC SURGERY SYNDROME
     Dosage: 20 MG/2 ML ONCE PER 3 WEEKS
     Route: 030
     Dates: start: 20140124
  2. SANDOSTATINE LAR [Suspect]
     Indication: OFF LABEL USE
     Dosage: 20 MG/2 ML ONCE PER 3 WEEKS
     Route: 030
     Dates: start: 20140214
  3. SANDOSTATINE LAR [Suspect]
     Dosage: 20 MG/2 ML ONCE PER 3 WEEKS
     Route: 030
     Dates: start: 20140307

REACTIONS (2)
  - Lower limb fracture [Recovering/Resolving]
  - Fall [Recovering/Resolving]
